FAERS Safety Report 9443894 (Version 1)
Quarter: 2013Q3

REPORT INFORMATION
  Report Type: Report from Study
  Country: AR (occurrence: AR)
  Receive Date: 20130807
  Receipt Date: 20130807
  Transmission Date: 20140515
  Serious: Yes (Other)
  Sender: FDA-Public Use
  Company Number: AR-ROCHE-1257978

PATIENT
  Sex: Female

DRUGS (1)
  1. RANIBIZUMAB [Suspect]
     Indication: EYE DISORDER
     Dosage: AMPOULE
     Route: 050
     Dates: start: 2011

REACTIONS (2)
  - Diabetes mellitus [Recovering/Resolving]
  - Diabetic retinopathy [Recovering/Resolving]
